FAERS Safety Report 20225183 (Version 11)
Quarter: 2022Q3

REPORT INFORMATION
  Report Type: Report from Study
  Country: US (occurrence: US)
  Receive Date: 20211223
  Receipt Date: 20220629
  Transmission Date: 20221027
  Serious: Yes (Other)
  Sender: FDA-Public Use
  Company Number: US-NOVARTISTESTPH-NVSC2021US295190

PATIENT
  Age: 78 Year
  Sex: Female

DRUGS (4)
  1. ENTRESTO [Suspect]
     Active Substance: SACUBITRIL\VALSARTAN
     Indication: Product used for unknown indication
     Dosage: 50 MG, BID (24/26 MG)
     Route: 048
     Dates: start: 202111
  2. ENTRESTO [Suspect]
     Active Substance: SACUBITRIL\VALSARTAN
     Dosage: 50 MG (24/26 MG)
     Route: 048
  3. ATORVASTATIN [Suspect]
     Active Substance: ATORVASTATIN
     Indication: Product used for unknown indication
     Dosage: UNK
     Route: 065
  4. PLAVIX [Concomitant]
     Active Substance: CLOPIDOGREL BISULFATE
     Indication: Product used for unknown indication
     Dosage: UNK
     Route: 065

REACTIONS (30)
  - Chronic kidney disease [Unknown]
  - Dyspnoea [Unknown]
  - Procedural haemorrhage [Unknown]
  - Pulmonary fibrosis [Unknown]
  - Kidney infection [Unknown]
  - Renal impairment [Recovered/Resolved]
  - Cardiac dysfunction [Unknown]
  - Pain [Not Recovered/Not Resolved]
  - Memory impairment [Unknown]
  - Limb discomfort [Unknown]
  - Blood glucose decreased [Unknown]
  - Decreased appetite [Unknown]
  - Gout [Unknown]
  - Gait disturbance [Not Recovered/Not Resolved]
  - Sinus disorder [Unknown]
  - Sleep disorder [Unknown]
  - Thyroid disorder [Unknown]
  - Ageusia [Unknown]
  - Dysphagia [Unknown]
  - Fluid retention [Unknown]
  - Joint injury [Unknown]
  - Contusion [Unknown]
  - Nausea [Unknown]
  - Nasopharyngitis [Recovering/Resolving]
  - Abdominal pain upper [Unknown]
  - Cough [Recovered/Resolved]
  - Fall [Unknown]
  - Inappropriate schedule of product administration [Unknown]
  - Product dose omission issue [Unknown]
  - Wrong technique in product usage process [Not Recovered/Not Resolved]

NARRATIVE: CASE EVENT DATE: 20211101
